FAERS Safety Report 16126761 (Version 1)
Quarter: 2019Q1

REPORT INFORMATION
  Report Type: Spontaneous
  Country: US (occurrence: US)
  Receive Date: 20190328
  Receipt Date: 20190328
  Transmission Date: 20190418
  Serious: Yes (Hospitalization, Other)
  Sender: FDA-Public Use
  Company Number: US-SA-2019SA084138

PATIENT
  Age: 54 Year
  Sex: Female
  Weight: 102.95 kg

DRUGS (18)
  1. SUCRALFATE. [Concomitant]
     Active Substance: SUCRALFATE
     Dosage: 1 G, QD
     Route: 048
     Dates: start: 20180313
  2. LEVOTHYROXINE [LEVOTHYROXINE SODIUM] [Concomitant]
     Dosage: 175 MCG
     Route: 048
     Dates: start: 20180313
  3. ASPIRIN [ACETYLSALICYLIC ACID] [Concomitant]
     Active Substance: ASPIRIN
     Dosage: 1 DOSE, QD
     Route: 048
     Dates: start: 20180313
  4. ALPRAZOLAM. [Concomitant]
     Active Substance: ALPRAZOLAM
     Dosage: 0.5 MG, BID
     Route: 048
     Dates: start: 20190313
  5. PRISTIQ EXTENDED-RELEASE [Concomitant]
     Active Substance: DESVENLAFAXINE SUCCINATE
     Dosage: 100 MG, QD
     Route: 048
     Dates: start: 20181231
  6. DULERA [Concomitant]
     Active Substance: FORMOTEROL FUMARATE DIHYDRATE\MOMETASONE FUROATE
     Dosage: 2 PUFFS, BID
     Dates: start: 20180313
  7. MYRBETRIQ [Concomitant]
     Active Substance: MIRABEGRON
     Dosage: 25 MG, QD
     Route: 048
     Dates: start: 20180313
  8. POTASSIUM [Concomitant]
     Active Substance: POTASSIUM
     Dosage: 1 DOSE, QD
     Route: 048
     Dates: start: 20180313
  9. ATORVASTATIN [Concomitant]
     Active Substance: ATORVASTATIN
     Dosage: 20 MG, QD
     Route: 048
     Dates: start: 20180313
  10. FABRAZYME [Suspect]
     Active Substance: AGALSIDASE BETA
     Indication: FABRY^S DISEASE
     Dosage: 100 MG, QOW
     Route: 041
     Dates: start: 20180314
  11. VITAMIN B12 [Concomitant]
     Active Substance: CYANOCOBALAMIN
     Dosage: 1 DOSE
     Route: 048
     Dates: start: 20180313
  12. TRAZODONE [Concomitant]
     Active Substance: TRAZODONE HYDROCHLORIDE
     Dosage: 50 MG, QD
     Route: 048
     Dates: start: 20180313
  13. DILTIAZEM. [Concomitant]
     Active Substance: DILTIAZEM
     Dosage: 300 MG, QD
     Route: 048
     Dates: start: 20180313
  14. BOTOX [Concomitant]
     Active Substance: ONABOTULINUMTOXINA
     Dosage: 200 UNK
     Route: 030
     Dates: start: 20190128
  15. PAROXETINE. [Concomitant]
     Active Substance: PAROXETINE
     Dosage: 10 MG, QD
  16. VERPAMIL [Concomitant]
     Active Substance: VERAPAMIL HYDROCHLORIDE
     Dosage: 240 MG, QD
     Route: 048
     Dates: start: 20180313
  17. SEROQUEL [Concomitant]
     Active Substance: QUETIAPINE FUMARATE
     Dosage: 200 MG, QD
     Route: 048
     Dates: start: 20180313
  18. DEXILANT [Concomitant]
     Active Substance: DEXLANSOPRAZOLE
     Dosage: 60 MG, QD
     Route: 048
     Dates: start: 20180313

REACTIONS (2)
  - Hypoaesthesia [Unknown]
  - Facial paralysis [Unknown]
